FAERS Safety Report 14897376 (Version 1)
Quarter: 2018Q2

REPORT INFORMATION
  Report Type: Spontaneous
  Country: US (occurrence: US)
  Receive Date: 20180515
  Receipt Date: 20180515
  Transmission Date: 20180711
  Serious: Yes (Other)
  Sender: FDA-Public Use
  Company Number: US-JNJFOC-20180507928

PATIENT
  Age: 89 Year
  Sex: Female
  Weight: 54.43 kg

DRUGS (6)
  1. MOTRIN IB [Suspect]
     Active Substance: IBUPROFEN
     Indication: PAIN IN EXTREMITY
     Dosage: ONCE A NIGHT
     Route: 048
     Dates: start: 20180418, end: 20180502
  2. FUROSEMIDE. [Concomitant]
     Active Substance: FUROSEMIDE
     Indication: PERIPHERAL SWELLING
     Dosage: 1 HALF TABLET
     Route: 065
  3. FUROSEMIDE. [Concomitant]
     Active Substance: FUROSEMIDE
     Indication: PERIPHERAL SWELLING
     Dosage: INCREASED FROM 1 HALF A TABLET TO 2 HALVES A DAY RECENTLY
     Route: 065
  4. FUROSEMIDE. [Concomitant]
     Active Substance: FUROSEMIDE
     Indication: FLUID RETENTION
     Dosage: 1 HALF TABLET
     Route: 065
  5. FUROSEMIDE. [Concomitant]
     Active Substance: FUROSEMIDE
     Indication: FLUID RETENTION
     Dosage: INCREASED FROM 1 HALF A TABLET TO 2 HALVES A DAY RECENTLY
     Route: 065
  6. MOTRIN IB [Suspect]
     Active Substance: IBUPROFEN
     Route: 048

REACTIONS (2)
  - Loss of consciousness [Recovered/Resolved]
  - Inappropriate schedule of drug administration [Unknown]

NARRATIVE: CASE EVENT DATE: 20180418
